FAERS Safety Report 20703023 (Version 3)
Quarter: 2022Q2

REPORT INFORMATION
  Report Type: Spontaneous
  Country: FR (occurrence: FR)
  Receive Date: 20220413
  Receipt Date: 20220617
  Transmission Date: 20220720
  Serious: Yes (Other)
  Sender: FDA-Public Use
  Company Number: FR-AFSSAPS-NT20221387

PATIENT
  Age: 60 Year
  Sex: Male
  Weight: 65 kg

DRUGS (19)
  1. MIDAZOLAM [Suspect]
     Active Substance: MIDAZOLAM
     Indication: General anaesthesia
     Dosage: 5 MILLIGRAM, UNK
     Route: 041
     Dates: start: 20220208, end: 20220208
  2. NOREPINEPHRINE [Suspect]
     Active Substance: NOREPINEPHRINE
     Indication: General anaesthesia
     Dosage: 436.67 MICROGRAM, UNK
     Route: 041
     Dates: start: 20220208, end: 20220208
  3. CEFUROXIME [Suspect]
     Active Substance: CEFUROXIME
     Indication: General anaesthesia
     Dosage: 3 GRAM, UNK
     Route: 041
     Dates: start: 20220208, end: 20220208
  4. PROTAMINE [Suspect]
     Active Substance: PROTAMINE
     Indication: General anaesthesia
     Dosage: 25000 INTERNATIONAL UNIT, UNK
     Route: 041
     Dates: start: 20220208, end: 20220208
  5. PROTAMINE [Suspect]
     Active Substance: PROTAMINE
     Indication: General anaesthesia
  6. HEPARIN SODIUM [Suspect]
     Active Substance: HEPARIN SODIUM
     Indication: General anaesthesia
     Dosage: 20000 INTERNATIONAL UNIT, UNK
     Route: 041
     Dates: start: 20220208, end: 20220208
  7. HEPARIN SODIUM [Suspect]
     Active Substance: HEPARIN SODIUM
     Indication: General anaesthesia
  8. ATROPINE SULFATE [Suspect]
     Active Substance: ATROPINE SULFATE
     Indication: General anaesthesia
     Dosage: 1 MILLIGRAM, UNK
     Route: 041
     Dates: start: 20220208, end: 20220208
  9. ATROPINE SULFATE [Suspect]
     Active Substance: ATROPINE SULFATE
     Indication: General anaesthesia
  10. PROPOFOL [Suspect]
     Active Substance: PROPOFOL
     Indication: General anaesthesia
     Dosage: 11 MICROGRAM, UNK
     Route: 041
     Dates: start: 20220208, end: 20220208
  11. PROPOFOL [Suspect]
     Active Substance: PROPOFOL
     Indication: General anaesthesia
  12. SUFENTANIL [Suspect]
     Active Substance: SUFENTANIL
     Indication: General anaesthesia
     Dosage: 1.34 MG/ML, UNK
     Route: 041
     Dates: start: 20220208, end: 20220208
  13. SUFENTANIL [Suspect]
     Active Substance: SUFENTANIL
     Indication: General anaesthesia
  14. TRANEXAMIC ACID [Suspect]
     Active Substance: TRANEXAMIC ACID
     Dosage: 0.9 GRAM, UNK
     Route: 041
     Dates: start: 20220208, end: 20220208
  15. TRANEXAMIC ACID [Suspect]
     Active Substance: TRANEXAMIC ACID
     Indication: General anaesthesia
  16. ATRACURIUM [Suspect]
     Active Substance: ATRACURIUM
     Indication: General anaesthesia
     Dosage: 40 MILLIGRAM, UNK
     Route: 041
     Dates: start: 20220208, end: 20220208
  17. ATRACURIUM [Suspect]
     Active Substance: ATRACURIUM
     Indication: General anaesthesia
  18. ETOMIDATE [Suspect]
     Active Substance: ETOMIDATE
     Indication: General anaesthesia
     Dosage: 10 MILLIGRAM, UNK
     Route: 041
     Dates: start: 20220208, end: 20220208
  19. ETOMIDATE [Suspect]
     Active Substance: ETOMIDATE
     Indication: General anaesthesia

REACTIONS (2)
  - Cholestasis [Recovering/Resolving]
  - Transaminases increased [Recovering/Resolving]

NARRATIVE: CASE EVENT DATE: 20220208
